FAERS Safety Report 10045849 (Version 2)
Quarter: 2014Q1

REPORT INFORMATION
  Report Type: Spontaneous
  Country: US (occurrence: US)
  Receive Date: 20140329
  Receipt Date: 20140329
  Transmission Date: 20141002
  Serious: Yes (Disabling)
  Sender: FDA-Public Use
  Company Number: US-GE HEALTHCARE MEDICAL DIAGNOSTICS-OSCN-PR-0903S-0163

PATIENT
  Age: 52 Year
  Sex: Male

DRUGS (7)
  1. OMNISCAN [Suspect]
     Indication: RENAL ARTERY STENOSIS
     Route: 042
     Dates: start: 20041203, end: 20041203
  2. GADOLINIUM (UNSPECIFIED) [Suspect]
     Indication: PRODUCT USED FOR UNKNOWN INDICATION
     Route: 042
     Dates: start: 20051221, end: 20051221
  3. GADOLINIUM (UNSPECIFIED) [Suspect]
     Indication: ANGIOPLASTY
  4. MAGNEVIST [Suspect]
     Indication: SKIN ULCER
     Route: 042
     Dates: start: 20060814, end: 20060814
  5. MAGNEVIST [Suspect]
     Indication: RENAL ARTERY STENOSIS
     Route: 042
     Dates: start: 20061208, end: 20061208
  6. MAGNEVIST [Suspect]
     Indication: PRODUCT USED FOR UNKNOWN INDICATION
     Route: 042
     Dates: start: 20061218, end: 20061218
  7. MAGNEVIST [Suspect]
     Indication: SKIN ULCER
     Route: 042
     Dates: start: 20070104, end: 20070104

REACTIONS (1)
  - Nephrogenic systemic fibrosis [Not Recovered/Not Resolved]
